FAERS Safety Report 23243968 (Version 1)
Quarter: 2023Q4

REPORT INFORMATION
  Report Type: Spontaneous
  Country: CH (occurrence: CH)
  Receive Date: 20231130
  Receipt Date: 20231130
  Transmission Date: 20240109
  Serious: Yes (Hospitalization, Other)
  Sender: FDA-Public Use
  Company Number: None

PATIENT
  Age: 63 Year
  Sex: Female
  Weight: 50 kg

DRUGS (8)
  1. YERVOY [Suspect]
     Active Substance: IPILIMUMAB
     Indication: Metastatic renal cell carcinoma
     Dosage: CYCLICAL
     Route: 042
     Dates: start: 20230309
  2. YERVOY [Suspect]
     Active Substance: IPILIMUMAB
     Dosage: CYCLICAL
     Route: 042
     Dates: start: 20230330
  3. YERVOY [Suspect]
     Active Substance: IPILIMUMAB
     Dosage: CYCLICAL
     Route: 042
     Dates: start: 20230425
  4. YERVOY [Suspect]
     Active Substance: IPILIMUMAB
     Dosage: CYCLICAL
     Route: 042
     Dates: start: 20230517
  5. OPDIVO [Suspect]
     Active Substance: NIVOLUMAB
     Indication: Metastatic renal cell carcinoma
     Dosage: CYCLICAL
     Route: 042
     Dates: start: 20230309
  6. OPDIVO [Suspect]
     Active Substance: NIVOLUMAB
     Dosage: CYCLICAL
     Route: 042
     Dates: start: 20230330
  7. OPDIVO [Suspect]
     Active Substance: NIVOLUMAB
     Dosage: CYCLICAL
     Route: 042
     Dates: start: 20230425
  8. OPDIVO [Suspect]
     Active Substance: NIVOLUMAB
     Dosage: CYCLICAL
     Route: 042
     Dates: start: 20230517

REACTIONS (5)
  - Addison^s disease [Recovering/Resolving]
  - Thyroiditis [Recovering/Resolving]
  - Hypophysitis [Recovering/Resolving]
  - Urinary tract infection [Unknown]
  - Normochromic normocytic anaemia [Unknown]

NARRATIVE: CASE EVENT DATE: 20230701
